FAERS Safety Report 6119298-7 (Version None)
Quarter: 2009Q1

REPORT INFORMATION
  Report Type: 
  Country: None (occurrence: None)
  Receive Date: 20090316
  Receipt Date: 20090304
  Transmission Date: 20090719
  Serious: Yes (Hospitalization)
  Sender: FDA-Public Use
  Company Number: PHHY2009JP08116

PATIENT
  Sex: Male

DRUGS (7)
  1. DIOVAN [Suspect]
     Indication: HYPERTENSION
     Dosage: 80 MG, BID
     Route: 048
     Dates: start: 20071217, end: 20080110
  2. LONGES [Concomitant]
     Indication: HYPERTENSION
     Dosage: 10 MG
     Route: 048
  3. ARTIST [Concomitant]
     Indication: HYPERTENSION
     Dosage: 20 MG
     Route: 048
  4. NORVASC [Concomitant]
     Indication: HYPERTENSION
     Dosage: 5 MG
     Route: 048
  5. OMEPRAL [Concomitant]
     Dosage: 10 MG
  6. ALOSITOL [Concomitant]
     Dosage: 200 MG
     Route: 048
  7. WARFARIN SODIUM [Concomitant]
     Dosage: 3 MG
     Route: 048

REACTIONS (1)
  - PNEUMONIA [None]
